FAERS Safety Report 20810237 (Version 2)
Quarter: 2022Q2

REPORT INFORMATION
  Report Type: Spontaneous
  Country: US (occurrence: None)
  Receive Date: 20220510
  Receipt Date: 20220629
  Transmission Date: 20220720
  Serious: No
  Sender: FDA-Public Use
  Company Number: 2022A157045

PATIENT
  Age: 46 Year
  Sex: Female
  Weight: 115.2 kg

DRUGS (1)
  1. BYDUREON BCISE [Suspect]
     Active Substance: EXENATIDE
     Indication: Glucose tolerance impaired
     Dosage: 2MG/ML ONCE A WEEK
     Route: 058
     Dates: start: 2020

REACTIONS (5)
  - Migraine [Recovered/Resolved]
  - Device use issue [Unknown]
  - Wrong technique in device usage process [Unknown]
  - Product prescribing issue [Unknown]
  - Device issue [Unknown]

NARRATIVE: CASE EVENT DATE: 20200101
